FAERS Safety Report 13142318 (Version 2)
Quarter: 2017Q3

REPORT INFORMATION
  Report Type: Spontaneous
  Country: US (occurrence: US)
  Receive Date: 20170123
  Receipt Date: 20170915
  Transmission Date: 20171127
  Serious: No
  Sender: FDA-Public Use
  Company Number: US-ACTELION-A-US2016-143878

PATIENT
  Age: 65 Year
  Sex: Female
  Weight: 55.78 kg

DRUGS (6)
  1. KEFLEX [Suspect]
     Active Substance: CEPHALEXIN
     Indication: PRODUCT USED FOR UNKNOWN INDICATION
     Dosage: UNK
     Route: 065
  2. OXYBUTININ ACCORD [Concomitant]
     Dosage: UNK
  3. METOPROLOL. [Concomitant]
     Active Substance: METOPROLOL
     Dosage: UNK
  4. OPSUMIT [Suspect]
     Active Substance: MACITENTAN
     Indication: PULMONARY ARTERIAL HYPERTENSION
     Dosage: 10 MG, QD
     Route: 048
     Dates: start: 20150202
  5. SPIRONOLACTONE. [Concomitant]
     Active Substance: SPIRONOLACTONE
     Dosage: UNK
  6. OMEPRAZOLE. [Concomitant]
     Active Substance: OMEPRAZOLE
     Dosage: UNK

REACTIONS (9)
  - Asthenia [Unknown]
  - Drug dose omission [Unknown]
  - Dyspnoea [Unknown]
  - Rash pruritic [Unknown]
  - Dizziness [Unknown]
  - Chest pain [Unknown]
  - Weight decreased [Unknown]
  - Hypotension [Unknown]
  - Wheezing [Unknown]

NARRATIVE: CASE EVENT DATE: 20161008
